FAERS Safety Report 7022304-9 (Version None)
Quarter: 2010Q3

REPORT INFORMATION
  Report Type: 
  Country: None (occurrence: None)
  Receive Date: 20100930
  Receipt Date: 20100923
  Transmission Date: 20110219
  Serious: Yes (Life-Threatening, Hospitalization, Other)
  Sender: FDA-Public Use
  Company Number: US-JNJFOC-20100808686

PATIENT
  Sex: Male
  Weight: 67.59 kg

DRUGS (4)
  1. PREZISTA [Suspect]
     Indication: HIV INFECTION
     Route: 048
  2. DAPSONE [Concomitant]
  3. TRUVADA [Concomitant]
     Route: 065
  4. NORVIR [Concomitant]
     Route: 065

REACTIONS (2)
  - ERYTHEMA MULTIFORME [None]
  - HEPATITIS [None]
